FAERS Safety Report 23332826 (Version 1)
Quarter: 2023Q4

REPORT INFORMATION
  Report Type: Spontaneous
  Country: US (occurrence: US)
  Receive Date: 20231222
  Receipt Date: 20231222
  Transmission Date: 20240109
  Serious: No
  Sender: FDA-Public Use
  Company Number: US-CTI BIOPHARMA-2023US04095

PATIENT

DRUGS (30)
  1. VONJO [Suspect]
     Active Substance: PACRITINIB
     Indication: Myelodysplastic syndrome
     Dosage: 100 MG, BID
     Route: 048
     Dates: start: 20230609
  2. ACETAMINOPHEN [Concomitant]
     Active Substance: ACETAMINOPHEN
  3. ALPRAZOLAM [Concomitant]
     Active Substance: ALPRAZOLAM
  4. ASPIRIN [Concomitant]
     Active Substance: ASPIRIN
  5. ATORVASTATIN [Concomitant]
     Active Substance: ATORVASTATIN
  6. BENADRYL ALLERGY [Concomitant]
     Active Substance: DIPHENHYDRAMINE HYDROCHLORIDE
  7. CALCIUM\VITAMIN D [Concomitant]
     Active Substance: CALCIUM\VITAMIN D
  8. CYCLOBENZAPRINE [Concomitant]
     Active Substance: CYCLOBENZAPRINE
  9. DEFERASIROX [Concomitant]
     Active Substance: DEFERASIROX
  10. DESLORATADINE [Concomitant]
     Active Substance: DESLORATADINE
  11. DIAZEPAM [Concomitant]
     Active Substance: DIAZEPAM
  12. FISH OIL [Concomitant]
     Active Substance: FISH OIL
  13. VITAMIN E [Concomitant]
     Active Substance: .ALPHA.-TOCOPHEROL
  14. LORAZEPAM [Concomitant]
     Active Substance: LORAZEPAM
  15. LOSARTAN [Concomitant]
     Active Substance: LOSARTAN
  16. MAGNESIUM [Concomitant]
     Active Substance: MAGNESIUM
  17. MELATONIN [Concomitant]
     Active Substance: MELATONIN
  18. METFORMIN [Concomitant]
     Active Substance: METFORMIN HYDROCHLORIDE
  19. VITAMINS NOS [Concomitant]
     Active Substance: VITAMINS
  20. OXYCODONE [Concomitant]
     Active Substance: OXYCODONE
  21. PANTOPRAZOLE [Concomitant]
     Active Substance: PANTOPRAZOLE
  22. PRAVASTATIN [Concomitant]
     Active Substance: PRAVASTATIN
  23. PREVAGEN [APOAEQUORIN] [Concomitant]
  24. REBLOZYL [Concomitant]
     Active Substance: LUSPATERCEPT-AAMT
  25. CARBOXYMETHYLCELLULOSE [Concomitant]
     Active Substance: CARBOXYMETHYLCELLULOSE
  26. THERAWORX RELIEF [Concomitant]
  27. VITAMIN B COMPLEX [Concomitant]
     Active Substance: CYANOCOBALAMIN\DEXPANTHENOL\NIACINAMIDE\PYRIDOXINE HYDROCHLORIDE\RIBOFLAVIN 5^-PHOSPHATE SODIUM\THIA
  28. VITAMIN D3 [Concomitant]
     Active Substance: CHOLECALCIFEROL
  29. DICLOFENAC [Concomitant]
     Active Substance: DICLOFENAC
  30. VENCLEXTA [Concomitant]
     Active Substance: VENETOCLAX

REACTIONS (4)
  - Pain [Not Recovered/Not Resolved]
  - Condition aggravated [Not Recovered/Not Resolved]
  - Insomnia [Not Recovered/Not Resolved]
  - Off label use [Unknown]

NARRATIVE: CASE EVENT DATE: 20230601
